FAERS Safety Report 25467030 (Version 2)
Quarter: 2025Q3

REPORT INFORMATION
  Report Type: Spontaneous
  Country: AU (occurrence: AU)
  Receive Date: 20250623
  Receipt Date: 20250901
  Transmission Date: 20251021
  Serious: Yes (Other)
  Sender: REGENERON
  Company Number: AU-BAYER-2025A073761

PATIENT
  Age: 80 Year
  Sex: Female

DRUGS (4)
  1. EYLEA HD [Suspect]
     Active Substance: AFLIBERCEPT
     Indication: Product used for unknown indication
     Dates: start: 20241113
  2. EYLEA HD [Suspect]
     Active Substance: AFLIBERCEPT
     Dates: start: 20250318
  3. EYLEA HD [Suspect]
     Active Substance: AFLIBERCEPT
     Dates: start: 20250506
  4. EYLEA [Concomitant]
     Active Substance: AFLIBERCEPT
     Indication: Product used for unknown indication
     Dates: start: 20250106, end: 20250106

REACTIONS (10)
  - Keratic precipitates [Recovered/Resolved]
  - Eye inflammation [Unknown]
  - Photophobia [Recovered/Resolved]
  - Corneal striae [Recovered/Resolved]
  - Visual acuity reduced [Unknown]
  - Eye pain [Recovered/Resolved]
  - Anterior chamber cell [Recovered/Resolved]
  - Ocular hyperaemia [Recovered/Resolved]
  - Vision blurred [Recovered/Resolved]
  - Corneal oedema [Recovered/Resolved]

NARRATIVE: CASE EVENT DATE: 20241125
